FAERS Safety Report 5818792-3 (Version None)
Quarter: 2008Q3

REPORT INFORMATION
  Report Type: 
  Country: None (occurrence: None)
  Receive Date: 20080723
  Receipt Date: 20080716
  Transmission Date: 20090109
  Serious: Yes (Other)
  Sender: FDA-Public Use
  Company Number: US-JNJFOC-20080502479

PATIENT
  Sex: Female

DRUGS (5)
  1. TYLENOL (CAPLET) [Suspect]
  2. TYLENOL (CAPLET) [Suspect]
     Indication: ARTHRITIS
     Dosage: SOMETIMES MORE THAN RECOMMENDED DOSE, FOR YEARS
  3. TYLENOL [Suspect]
  4. TYLENOL [Suspect]
     Indication: ARTHRITIS
     Dosage: SOMETIMES MORE THAN RECOMMENDED DOSE, FOR YEARS
  5. ALCOHOL [Concomitant]

REACTIONS (2)
  - OVERDOSE [None]
  - PANCREATITIS CHRONIC [None]
